FAERS Safety Report 7995762-0 (Version None)
Quarter: 2011Q4

REPORT INFORMATION
  Report Type: 
  Country: None (occurrence: None)
  Receive Date: 20111216
  Receipt Date: 20111205
  Transmission Date: 20120403
  Serious: Yes (Other)
  Sender: FDA-Public Use
  Company Number: 2011SP056220

PATIENT
  Age: 35 Year
  Sex: Female

DRUGS (1)
  1. DULERA ORAL INHALATION [Suspect]
     Indication: ASTHMA
     Dosage: 2 DF, BID, INH
     Route: 055
     Dates: start: 20111123, end: 20111128

REACTIONS (9)
  - DYSPNOEA [None]
  - CHEST PAIN [None]
  - DYSARTHRIA [None]
  - DRUG HYPERSENSITIVITY [None]
  - INSOMNIA [None]
  - COUGH [None]
  - MUSCLE SPASMS [None]
  - HEADACHE [None]
  - SWOLLEN TONGUE [None]
